FAERS Safety Report 8113318-6 (Version None)
Quarter: 2012Q1

REPORT INFORMATION
  Report Type: 
  Country: None (occurrence: None)
  Receive Date: 20120203
  Receipt Date: 20120127
  Transmission Date: 20120608
  Serious: Yes (Hospitalization)
  Sender: FDA-Public Use
  Company Number: PHEH2011US01476

PATIENT
  Sex: Female

DRUGS (22)
  1. METFORMIN HCL [Concomitant]
  2. AMLODIPINE [Concomitant]
  3. PREDNISONE TAB [Concomitant]
  4. SINGULAIR [Concomitant]
  5. FLONASE [Concomitant]
  6. ADVAIR DISKUS 100/50 [Concomitant]
  7. GLIMEPIRIDE [Concomitant]
  8. PAXIL [Concomitant]
  9. PROBIOTICS [Concomitant]
  10. ALBUTEROL [Concomitant]
  11. SPIRIVA [Concomitant]
  12. LORTAB [Concomitant]
  13. LISINOPRIL [Concomitant]
  14. TOBI [Suspect]
     Indication: CYSTIC FIBROSIS
     Dosage: 300 MG, BID IN A CYCLE OF 28 DAYS ON AND OFF
     Dates: start: 20110501, end: 20111101
  15. TOBI [Suspect]
     Dosage: 300 MG, BID IN A CYCLE OF 28 DAYS ON AND OFF
     Dates: start: 20110601
  16. MULTIVITAMINS AND D, E, FE, CA [Concomitant]
  17. PULMOZYME [Concomitant]
     Dates: start: 20110601
  18. PROTONIX [Concomitant]
  19. DULCOLAX [Concomitant]
  20. VITAMIN K TAB [Concomitant]
  21. BUSPAR [Concomitant]
  22. AMBIEN [Concomitant]

REACTIONS (5)
  - OESOPHAGEAL CANDIDIASIS [None]
  - DYSPHONIA [None]
  - DRY MOUTH [None]
  - HYPOTENSION [None]
  - WHEEZING [None]
